FAERS Safety Report 15576097 (Version 1)
Quarter: 2018Q4

REPORT INFORMATION
  Report Type: Spontaneous
  Country: US (occurrence: US)
  Receive Date: 20181101
  Receipt Date: 20181101
  Transmission Date: 20190205
  Serious: No
  Sender: FDA-Public Use
  Company Number: US-MIST-TIR-2018-0331

PATIENT
  Age: 64 Year
  Sex: Female
  Weight: 92.62 kg

DRUGS (12)
  1. TIROSINT [Suspect]
     Active Substance: LEVOTHYROXINE SODIUM
     Indication: NASOPHARYNGEAL CANCER
     Dosage: ONE 150MCG CAPSULE AND ONE 25MCG CAPSULE DAILY
     Route: 048
     Dates: start: 201801
  2. OMEPRAZOLE. [Concomitant]
     Active Substance: OMEPRAZOLE
     Indication: GASTROOESOPHAGEAL REFLUX DISEASE
     Dosage: AS NEEDED
  3. TIROSINT [Suspect]
     Active Substance: LEVOTHYROXINE SODIUM
     Indication: NASOPHARYNGEAL CANCER
     Dosage: ONE 150MCG CAPSULE, ONE 100MCG CAPSULE AND ONE 25MCG CAPSULE DAILY
     Route: 048
     Dates: start: 201803, end: 20180326
  4. VITAMIN D [Concomitant]
     Active Substance: CHOLECALCIFEROL
     Indication: PRODUCT USED FOR UNKNOWN INDICATION
     Dosage: 50,000 UNITS TWICE A MONTH
  5. TIROSINT [Suspect]
     Active Substance: LEVOTHYROXINE SODIUM
     Indication: NASOPHARYNGEAL CANCER
     Dosage: ONE 150MCG CAPSULE DAILY
     Route: 048
     Dates: end: 201801
  6. TIROSINT [Suspect]
     Active Substance: LEVOTHYROXINE SODIUM
     Indication: CYSTITIS RADIATION
     Dosage: ONE 150MCG CAPSULE, ONE 100MCG CAPSULE AND ONE 25MCG CAPSULE DAILY
     Route: 048
     Dates: start: 201803, end: 20180326
  7. LOSARTAN. [Concomitant]
     Active Substance: LOSARTAN
     Indication: BLOOD PRESSURE ABNORMAL
  8. TIROSINT [Suspect]
     Active Substance: LEVOTHYROXINE SODIUM
     Dosage: ONE 150MCG CAPSULE AND THREE 25MCG CAPSULES DAILY
     Route: 048
     Dates: start: 20180327
  9. TIROSINT [Suspect]
     Active Substance: LEVOTHYROXINE SODIUM
     Indication: RADIOTHERAPY
     Dosage: ONE 150MCG CAPSULE AND ONE 25MCG CAPSULE DAILY
     Route: 048
     Dates: start: 201801
  10. TIROSINT [Suspect]
     Active Substance: LEVOTHYROXINE SODIUM
     Dosage: ONE 150MCG CAPSULE AND THREE 25MCG CAPSULES DAILY
     Route: 048
     Dates: start: 20180327
  11. TIROSINT [Suspect]
     Active Substance: LEVOTHYROXINE SODIUM
     Indication: CYSTITIS RADIATION
  12. TIROSINT [Suspect]
     Active Substance: LEVOTHYROXINE SODIUM
     Dosage: ONE 150MCG CAPSULE, ONE 100MCG CAPSULE AND ONE 25MCG CAPSULE DAILY
     Route: 048
     Dates: start: 201803, end: 20180326

REACTIONS (10)
  - Weight increased [Unknown]
  - Insomnia [Unknown]
  - Feeling abnormal [Unknown]
  - Asthenia [Unknown]
  - Drug level below therapeutic [Unknown]
  - Dizziness [Unknown]
  - Alopecia [Unknown]
  - Product use issue [Unknown]
  - Thyroid function test abnormal [Unknown]
  - Depression [Unknown]

NARRATIVE: CASE EVENT DATE: 201801
